FAERS Safety Report 7589217-5 (Version None)
Quarter: 2011Q3

REPORT INFORMATION
  Report Type: 
  Country: None (occurrence: None)
  Receive Date: 20110705
  Receipt Date: 20110623
  Transmission Date: 20111222
  Serious: Yes (Other)
  Sender: FDA-Public Use
  Company Number: GB-ABBOTT-11P-163-0725068-00

PATIENT
  Sex: Male

DRUGS (3)
  1. DICLOFENAC SODIUM [Concomitant]
     Indication: POLYARTHRITIS
     Route: 048
  2. HUMIRA [Suspect]
     Indication: POLYARTHRITIS
  3. OMEPRAZOLE [Concomitant]
     Indication: GASTRIC DISORDER
     Route: 048

REACTIONS (1)
  - NIGHTMARE [None]
